FAERS Safety Report 6942361-5 (Version None)
Quarter: 2010Q3

REPORT INFORMATION
  Report Type: 
  Country: None (occurrence: None)
  Receive Date: 20100826
  Receipt Date: 20100812
  Transmission Date: 20110219
  Serious: Yes (Disabling, Other)
  Sender: FDA-Public Use
  Company Number: PHHY2010CR53203

PATIENT
  Age: 63 Year
  Sex: Male

DRUGS (9)
  1. DIOVAN [Suspect]
     Indication: HYPERTENSION
     Dosage: 320 MG TABLET DAILY
     Route: 048
  2. PLASIL [Concomitant]
  3. FAMOGAN [Concomitant]
  4. ASPIRIN [Concomitant]
  5. ALLOPURINOL [Concomitant]
  6. INSULIN [Concomitant]
  7. METFORMIN [Concomitant]
  8. LOVASTATIN [Concomitant]
  9. LOVAZA [Concomitant]

REACTIONS (4)
  - ACTIVITIES OF DAILY LIVING IMPAIRED [None]
  - BACK INJURY [None]
  - FALL [None]
  - THORACIC VERTEBRAL FRACTURE [None]
